FAERS Safety Report 24770942 (Version 1)
Quarter: 2024Q4

REPORT INFORMATION
  Report Type: Report from Study
  Country: IN (occurrence: IN)
  Receive Date: 20241224
  Receipt Date: 20241224
  Transmission Date: 20250115
  Serious: Yes (Hospitalization, Other)
  Sender: ROCHE
  Company Number: IN-ROCHE-RCA5076878

PATIENT
  Age: 68 Year
  Sex: Female

DRUGS (2)
  1. TECENTRIQ [Suspect]
     Active Substance: ATEZOLIZUMAB
     Indication: Breast cancer
     Route: 042
     Dates: start: 20231130
  2. TECENTRIQ [Suspect]
     Active Substance: ATEZOLIZUMAB
     Route: 042

REACTIONS (5)
  - Asthenia [Unknown]
  - Parkinson^s disease [Unknown]
  - Headache [Unknown]
  - Dizziness [Unknown]
  - Gait disturbance [Unknown]
